FAERS Safety Report 5932367-7 (Version None)
Quarter: 2008Q4

REPORT INFORMATION
  Report Type: 
  Country: None (occurrence: None)
  Receive Date: 20081028
  Receipt Date: 20081020
  Transmission Date: 20090506
  Serious: Yes (Death, Hospitalization)
  Sender: FDA-Public Use
  Company Number: US-BAYER-200818510NA

PATIENT
  Age: 63 Year
  Sex: Female
  Weight: 100 kg

DRUGS (19)
  1. SORAFENIB [Suspect]
     Indication: MESOTHELIOMA
     Dosage: TOTAL DAILY DOSE: 200 MG  UNIT DOSE: 200 MG
     Route: 048
     Dates: start: 20071128, end: 20071212
  2. ADVIL [Concomitant]
     Indication: HEADACHE
     Dates: start: 20071204
  3. CARDIZEM [Concomitant]
     Indication: HYPERTENSION
  4. ZESTRIL [Concomitant]
     Indication: HYPERTENSION
  5. METHADONE HCL [Concomitant]
     Dosage: TOTAL DAILY DOSE: 60 MG
     Route: 048
  6. METHADONE HCL [Concomitant]
  7. NEXIUM [Concomitant]
     Dosage: TOTAL DAILY DOSE: 40 MG
  8. DILTIAZEM HCL [Concomitant]
     Dosage: TOTAL DAILY DOSE: 120 MG
  9. LISINOPRIL [Concomitant]
     Dosage: TOTAL DAILY DOSE: 10 MG
     Route: 048
  10. ALLEGRA [Concomitant]
  11. ESTRADIOL [Concomitant]
  12. HYDROCHLOROTHIAZIDE [Concomitant]
  13. CORAL CALCIUM [Concomitant]
  14. LIPITOR [Concomitant]
     Route: 048
  15. M.V.I. [Concomitant]
     Route: 048
  16. FLOVENT [Concomitant]
  17. ALBUTEROL [Concomitant]
  18. LEXAPRO [Concomitant]
  19. BUTCHER'S BROOM [Concomitant]

REACTIONS (8)
  - DEATH [None]
  - DEHYDRATION [None]
  - DIARRHOEA [None]
  - GRAND MAL CONVULSION [None]
  - MENTAL STATUS CHANGES [None]
  - NAUSEA [None]
  - SUBARACHNOID HAEMORRHAGE [None]
  - VOMITING [None]
